FAERS Safety Report 26133195 (Version 1)
Quarter: 2025Q4

REPORT INFORMATION
  Report Type: Spontaneous
  Country: EU (occurrence: EU)
  Receive Date: 20251209
  Receipt Date: 20251209
  Transmission Date: 20260117
  Serious: Yes (Hospitalization, Other)
  Sender: GLAXOSMITHKLINE
  Company Number: EU-GLAXOSMITHKLINE INC-SE2025EME156329

PATIENT

DRUGS (1)
  1. NUCALA [Suspect]
     Active Substance: MEPOLIZUMAB
     Indication: Asthma
     Dosage: UNK, INJECTION DOSAGE FORM

REACTIONS (3)
  - Pneumonia [Unknown]
  - Emphysema [Unknown]
  - Off label use [Unknown]
